FAERS Safety Report 10132811 (Version 1)
Quarter: 2014Q2

REPORT INFORMATION
  Report Type: Report from Study
  Country: US (occurrence: US)
  Receive Date: 20140428
  Receipt Date: 20140428
  Transmission Date: 20141212
  Serious: Yes (Other)
  Sender: FDA-Public Use
  Company Number: US-SA-2014SA052366

PATIENT
  Age: 62 Year
  Sex: Female

DRUGS (5)
  1. LANTUS [Suspect]
     Indication: DIABETES MELLITUS
     Dosage: DOSE:80 UNIT(S)
     Route: 065
  2. LANTUS [Suspect]
     Indication: DIABETES MELLITUS
     Dosage: DOSE:100 UNIT(S)
     Route: 065
  3. NOVOLOG [Concomitant]
     Indication: DIABETES MELLITUS
  4. ZETIA [Concomitant]
  5. PREDNISONE [Concomitant]

REACTIONS (8)
  - Deafness [Not Recovered/Not Resolved]
  - VIIth nerve paralysis [Recovering/Resolving]
  - Tympanic membrane perforation [Unknown]
  - Ear haemorrhage [Unknown]
  - Viral infection [Unknown]
  - Inner ear inflammation [Unknown]
  - Tinnitus [Not Recovered/Not Resolved]
  - Blood glucose increased [Unknown]
